FAERS Safety Report 8477787-4 (Version None)
Quarter: 2012Q2

REPORT INFORMATION
  Report Type: 
  Country: None (occurrence: None)
  Receive Date: 20120626
  Receipt Date: 20120626
  Transmission Date: 20120825
  Serious: No
  Sender: FDA-Public Use
  Company Number: None

PATIENT
  Age: 57 Year
  Sex: Female
  Weight: 64.2 kg

DRUGS (2)
  1. CLOPIDOGREL [Suspect]
     Indication: CEREBROVASCULAR ACCIDENT PROPHYLAXIS
     Dosage: 75 MG EVERY DAY PO
     Route: 048
     Dates: start: 20111204, end: 20111209
  2. CLOPIDOGREL [Suspect]
     Indication: CORONARY ARTERY DISEASE
     Dosage: 75 MG EVERY DAY PO
     Route: 048
     Dates: start: 20111204, end: 20111209

REACTIONS (1)
  - RASH PRURITIC [None]
